FAERS Safety Report 6085781-6 (Version None)
Quarter: 2009Q1

REPORT INFORMATION
  Report Type: 
  Country: None (occurrence: None)
  Receive Date: 20090217
  Receipt Date: 20080123
  Transmission Date: 20090719
  Serious: Yes (Other)
  Sender: FDA-Public Use
  Company Number: MC200800051

PATIENT
  Age: 56 Year
  Sex: Male
  Weight: 90.2 kg

DRUGS (2)
  1. ANGIOMAX [Suspect]
     Indication: PERCUTANEOUS CORONARY INTERVENTION
     Dosage: 14.25 ML (5MG/ML), BOLUS, IV BOLUS; 33.25 ML (5MG/ML), HR  INTRAVENOUS
     Route: 040
     Dates: start: 20080116, end: 20080116
  2. ANGIOMAX [Suspect]
     Indication: PERCUTANEOUS CORONARY INTERVENTION
     Dosage: 14.25 ML (5MG/ML), BOLUS, IV BOLUS; 33.25 ML (5MG/ML), HR  INTRAVENOUS
     Route: 040
     Dates: start: 20080116, end: 20080116

REACTIONS (4)
  - BACK PAIN [None]
  - CHEST PAIN [None]
  - CORONARY ARTERY THROMBOSIS [None]
  - NAUSEA [None]
